FAERS Safety Report 9985992 (Version 1)
Quarter: 2014Q1

REPORT INFORMATION
  Report Type: Report from Study
  Country: US (occurrence: US)
  Receive Date: 20140307
  Receipt Date: 20140307
  Transmission Date: 20141002
  Serious: No
  Sender: FDA-Public Use
  Company Number: US-ABBVIE-13P-163-1089575-00

PATIENT
  Age: 59 Year
  Sex: Male

DRUGS (6)
  1. HUMIRA [Suspect]
     Indication: CROHN^S DISEASE
     Dates: start: 201301
  2. CIPRO [Concomitant]
     Indication: POUCHITIS
  3. PROCTOFOAM [Concomitant]
     Indication: PRODUCT USED FOR UNKNOWN INDICATION
     Dosage: DAILY
  4. METOPROLOL [Concomitant]
     Indication: BLOOD PRESSURE
  5. FINASTERIDE [Concomitant]
     Indication: PROSTATIC SPECIFIC ANTIGEN INCREASED
  6. NASONEX [Concomitant]
     Indication: HYPERSENSITIVITY

REACTIONS (4)
  - Malaise [Recovering/Resolving]
  - Muscle spasms [Recovering/Resolving]
  - Diarrhoea [Recovering/Resolving]
  - Abdominal discomfort [Recovering/Resolving]
